FAERS Safety Report 24917339 (Version 1)
Quarter: 2025Q1

REPORT INFORMATION
  Report Type: Report from Study
  Country: US (occurrence: US)
  Receive Date: 20250203
  Receipt Date: 20250203
  Transmission Date: 20250409
  Serious: Yes (Other)
  Sender: ALEXION PHARMACEUTICALS
  Company Number: US-AstraZeneca-CH-00786309A

PATIENT
  Age: 21 Year
  Weight: 53.061 kg

DRUGS (17)
  1. TEZEPELUMAB [Suspect]
     Active Substance: TEZEPELUMAB
     Indication: Asthma
     Dosage: 210 MILLIGRAM, Q4W
  2. TEZEPELUMAB [Suspect]
     Active Substance: TEZEPELUMAB
  3. ALBUTEROL SULFATE [Concomitant]
     Active Substance: ALBUTEROL SULFATE
  4. AZELASTINE [Concomitant]
     Active Substance: AZELASTINE
  5. EPINEPHRINE [Concomitant]
     Active Substance: EPINEPHRINE
  6. EUCRISA [Concomitant]
     Active Substance: CRISABOROLE
  7. FAMOTIDINE [Concomitant]
     Active Substance: FAMOTIDINE
  8. FEXOFENADINE [Concomitant]
     Active Substance: FEXOFENADINE HYDROCHLORIDE
  9. FLONASE [Concomitant]
     Active Substance: FLUTICASONE PROPIONATE
  10. MONTELUKAST [Concomitant]
     Active Substance: MONTELUKAST
  11. PATADAY [Concomitant]
     Active Substance: OLOPATADINE HYDROCHLORIDE
     Route: 065
  12. SINGULAIR [Concomitant]
     Active Substance: MONTELUKAST SODIUM
     Dosage: 10 MILLIGRAM, QD
  13. SPIRONOLACTONE [Concomitant]
     Active Substance: SPIRONOLACTONE
  14. TRELEGY ELLIPTA [Concomitant]
     Active Substance: FLUTICASONE FUROATE\UMECLIDINIUM BROMIDE\VILANTEROL TRIFENATATE
     Dosage: 210 MILLIGRAM
  15. TRELEGY ELLIPTA [Concomitant]
     Active Substance: FLUTICASONE FUROATE\UMECLIDINIUM BROMIDE\VILANTEROL TRIFENATATE
  16. TRELEGY ELLIPTA [Concomitant]
     Active Substance: FLUTICASONE FUROATE\UMECLIDINIUM BROMIDE\VILANTEROL TRIFENATATE
  17. TRIAMCINOLONE ACETONIDE [Concomitant]
     Active Substance: TRIAMCINOLONE ACETONIDE
     Dosage: 0.1 PERCENT, QD

REACTIONS (13)
  - Pulmonary congestion [Unknown]
  - Anaphylactic reaction [Unknown]
  - Syncope [Unknown]
  - Presyncope [Recovered/Resolved]
  - Cough [Unknown]
  - Wheezing [Unknown]
  - Dyspnoea [Unknown]
  - Urticaria [Unknown]
  - Conjunctivitis allergic [Unknown]
  - Chest discomfort [Unknown]
  - Gastrooesophageal reflux disease [Unknown]
  - Immunisation [Unknown]
  - Otitis media [Unknown]
